FAERS Safety Report 21995964 (Version 1)
Quarter: 2023Q1

REPORT INFORMATION
  Report Type: Report from Study
  Country: CA (occurrence: CA)
  Receive Date: 20230215
  Receipt Date: 20230215
  Transmission Date: 20230417
  Serious: Yes (Other)
  Sender: FDA-Public Use
  Company Number: CA-MYLANLABS-2023M1016483

PATIENT
  Sex: Female
  Weight: 57.8 kg

DRUGS (1)
  1. OGIVRI [Suspect]
     Active Substance: TRASTUZUMAB-DKST
     Indication: HER2 positive breast cancer
     Dosage: UNK
     Route: 042
     Dates: start: 20220817, end: 20230117

REACTIONS (1)
  - Breast cancer [Unknown]
